FAERS Safety Report 13831061 (Version 7)
Quarter: 2024Q4

REPORT INFORMATION
  Report Type: Spontaneous
  Country: FR (occurrence: FR)
  Receive Date: 20170803
  Receipt Date: 20241004
  Transmission Date: 20250115
  Serious: Yes (Hospitalization, Other)
  Sender: MERCK
  Company Number: FR-009507513-1708FRA000168

PATIENT
  Age: 33 Year
  Sex: Male
  Weight: 59.3 kg

DRUGS (32)
  1. ZERBAXA [Suspect]
     Active Substance: CEFTOLOZANE SULFATE\TAZOBACTAM SODIUM
     Indication: Septic shock
     Dosage: 2 G, Q8H
     Route: 042
     Dates: start: 20170624, end: 20170629
  2. ZERBAXA [Suspect]
     Active Substance: CEFTOLOZANE SULFATE\TAZOBACTAM SODIUM
     Indication: Sepsis
     Dosage: 6G, UNK
     Route: 042
     Dates: start: 20170624
  3. ZERBAXA [Suspect]
     Active Substance: CEFTOLOZANE SULFATE\TAZOBACTAM SODIUM
     Dosage: 6G, UNK
     Route: 042
     Dates: start: 201707, end: 20170711
  4. ZERBAXA [Suspect]
     Active Substance: CEFTOLOZANE SULFATE\TAZOBACTAM SODIUM
     Dosage: 2 G, Q8H
     Route: 042
     Dates: start: 20170709, end: 20170711
  5. ARGATROBAN [Suspect]
     Active Substance: ARGATROBAN
     Indication: Embolism
     Dosage: UNK
     Route: 042
     Dates: start: 20170511, end: 20170712
  6. ARGATROBAN [Suspect]
     Active Substance: ARGATROBAN
     Indication: Thrombophlebitis septic
  7. ARGATROBAN [Suspect]
     Active Substance: ARGATROBAN
     Indication: Thrombophlebitis septic
  8. METHADONE [Suspect]
     Active Substance: METHADONE HYDROCHLORIDE
     Indication: Drug dependence
     Dosage: 30 MG, WHEN
     Route: 048
     Dates: start: 20170602
  9. TOBRAMYCIN [Suspect]
     Active Substance: TOBRAMYCIN\TOBRAMYCIN SULFATE
     Indication: Pneumonia
     Dosage: 400 MG, QD
     Route: 042
     Dates: start: 20170612, end: 20170612
  10. TOBRAMYCIN [Suspect]
     Active Substance: TOBRAMYCIN\TOBRAMYCIN SULFATE
     Indication: Pneumonia staphylococcal
     Dosage: 400 MG,QD
     Route: 042
     Dates: start: 20170622, end: 20170624
  11. TOBRAMYCIN [Suspect]
     Active Substance: TOBRAMYCIN\TOBRAMYCIN SULFATE
     Indication: Pneumonia streptococcal
     Dosage: 400 MG,QD
     Route: 042
     Dates: start: 20170629, end: 20170701
  12. TOBRAMYCIN [Suspect]
     Active Substance: TOBRAMYCIN\TOBRAMYCIN SULFATE
     Dosage: 400 MG,QD
     Route: 042
     Dates: start: 20170710, end: 20170711
  13. COLISTIMETHATE SODIUM [Suspect]
     Active Substance: COLISTIMETHATE SODIUM
     Indication: Pneumonia
     Dosage: 2 DF, Q6H
     Route: 055
     Dates: start: 20170617, end: 20170623
  14. COLISTIMETHATE SODIUM [Suspect]
     Active Substance: COLISTIMETHATE SODIUM
     Dosage: 8 DF, UNK
     Route: 055
     Dates: start: 20170602
  15. COLISTIMETHATE SODIUM [Suspect]
     Active Substance: COLISTIMETHATE SODIUM
     Dosage: 2 DF, Q6H
     Route: 055
     Dates: start: 20170710, end: 20170711
  16. COLISTIMETHATE SODIUM [Suspect]
     Active Substance: COLISTIMETHATE SODIUM
     Dosage: 2 DF, Q6H
     Route: 055
     Dates: start: 20170626, end: 20170703
  17. COLISTIMETHATE SODIUM [Suspect]
     Active Substance: COLISTIMETHATE SODIUM
     Dosage: 2 DF, Q6H
     Route: 055
     Dates: start: 20170602, end: 20170614
  18. AMIKACIN [Concomitant]
     Active Substance: AMIKACIN
     Dosage: UNK
  19. AMIKACIN [Concomitant]
     Active Substance: AMIKACIN
     Dosage: UNK
  20. PIPERACILLIN SODIUM\TAZOBACTAM SODIUM [Concomitant]
     Active Substance: PIPERACILLIN SODIUM\TAZOBACTAM SODIUM
  21. MYCAMINE [Concomitant]
     Active Substance: MICAFUNGIN SODIUM
     Indication: Systemic candida
     Dosage: 800 MG, UNK
     Route: 042
     Dates: start: 20170601
  22. MYCAMINE [Concomitant]
     Active Substance: MICAFUNGIN SODIUM
     Indication: Candida infection
     Dosage: 100 MG, WHEN
     Route: 042
     Dates: start: 20170605, end: 20170612
  23. MYCAMINE [Concomitant]
     Active Substance: MICAFUNGIN SODIUM
     Dosage: UNK
     Dates: start: 20170617, end: 20170617
  24. MYCAMINE [Concomitant]
     Active Substance: MICAFUNGIN SODIUM
     Dosage: UNK
     Route: 042
     Dates: start: 20170601
  25. MYCAMINE [Concomitant]
     Active Substance: MICAFUNGIN SODIUM
     Dosage: UNK
     Route: 042
     Dates: start: 20170617, end: 20170617
  26. CIPROFLOXACIN [Concomitant]
     Active Substance: CIPROFLOXACIN
     Indication: Pneumonia staphylococcal
     Dosage: UNK
     Dates: end: 20170602
  27. FOSFOMYCIN [Concomitant]
     Active Substance: FOSFOMYCIN
     Indication: Pneumonia staphylococcal
     Dosage: UNK
     Route: 042
     Dates: start: 20170602, end: 20170617
  28. FOSFOMYCIN [Concomitant]
     Active Substance: FOSFOMYCIN
     Indication: Pneumonia
     Dosage: UNK UNK,UNK
     Route: 065
     Dates: start: 20170622, end: 20170623
  29. FOSFOMYCIN [Concomitant]
     Active Substance: FOSFOMYCIN
     Indication: Pneumonia staphylococcal
  30. CLINDAMYCIN [Concomitant]
     Active Substance: CLINDAMYCIN
     Dosage: UNK
  31. CLINDAMYCIN [Concomitant]
     Active Substance: CLINDAMYCIN
     Dosage: UNK
  32. CLINDAMYCIN [Concomitant]
     Active Substance: CLINDAMYCIN
     Dosage: UNK

REACTIONS (3)
  - Leukopenia [Not Recovered/Not Resolved]
  - Neutropenia [Not Recovered/Not Resolved]
  - Lymphopenia [Not Recovered/Not Resolved]

NARRATIVE: CASE EVENT DATE: 20170702
